FAERS Safety Report 16703846 (Version 1)
Quarter: 2019Q3

REPORT INFORMATION
  Report Type: Spontaneous
  Country: FR (occurrence: FR)
  Receive Date: 20190814
  Receipt Date: 20190814
  Transmission Date: 20191004
  Serious: Yes (Hospitalization, Other)
  Sender: FDA-Public Use
  Company Number: FR-LP PHARMA-2019PRN00609

PATIENT
  Age: 21 Month
  Sex: Male

DRUGS (1)
  1. CLONIDINE HYDROCHLORIDE. [Suspect]
     Active Substance: CLONIDINE HYDROCHLORIDE
     Indication: GROWTH RETARDATION
     Dosage: 0.15 MG
     Route: 042

REACTIONS (7)
  - Incorrect route of product administration [Recovered/Resolved]
  - Somnolence [Recovered/Resolved]
  - Hypotension [Recovered/Resolved]
  - Miosis [Recovered/Resolved]
  - Dyspnoea [Recovered/Resolved]
  - Product preparation issue [Recovered/Resolved]
  - Hypertension [Recovered/Resolved]
